FAERS Safety Report 7513396-9 (Version None)
Quarter: 2011Q2

REPORT INFORMATION
  Report Type: 
  Country: None (occurrence: None)
  Receive Date: 20110531
  Receipt Date: 20110524
  Transmission Date: 20111010
  Serious: Yes (Death)
  Sender: FDA-Public Use
  Company Number: DE-BRISTOL-MYERS SQUIBB COMPANY-15775356

PATIENT
  Age: 75 Year
  Sex: Female

DRUGS (2)
  1. ENOXAPARIN SODIUM [Suspect]
  2. ABILIFY [Suspect]
     Route: 048

REACTIONS (2)
  - AGRANULOCYTOSIS [None]
  - PNEUMONIA [None]
